FAERS Safety Report 7026924-7 (Version None)
Quarter: 2010Q4

REPORT INFORMATION
  Report Type: 
  Country: None (occurrence: None)
  Receive Date: 20101004
  Receipt Date: 20100927
  Transmission Date: 20110411
  Serious: Yes (Hospitalization)
  Sender: FDA-Public Use
  Company Number: B0602562A

PATIENT
  Sex: Male

DRUGS (13)
  1. TELZIR [Suspect]
     Indication: HIV INFECTION
     Dosage: 1400MG PER DAY
     Route: 048
     Dates: start: 20041101, end: 20090511
  2. NORVIR [Suspect]
     Indication: HIV INFECTION
     Dosage: 200MG PER DAY
     Route: 048
     Dates: start: 20041104, end: 20090511
  3. EFAVIRENZ [Suspect]
     Indication: HIV INFECTION
     Dosage: 600MG PER DAY
     Route: 048
     Dates: start: 20000425, end: 20090511
  4. PRAVASTATIN [Suspect]
     Dosage: 20MG PER DAY
     Route: 048
     Dates: start: 20031101, end: 20090511
  5. MAREVAN [Suspect]
     Indication: ATRIAL FIBRILLATION
     Route: 048
     Dates: start: 19970101, end: 20090201
  6. VOLTAREN [Suspect]
     Route: 061
     Dates: start: 20090203, end: 20090201
  7. ISENTRESS [Concomitant]
     Indication: HIV INFECTION
     Dosage: 800MG PER DAY
     Route: 048
     Dates: start: 20080729
  8. EMCONCOR [Concomitant]
     Indication: ATRIAL FIBRILLATION
     Dosage: 5MG PER DAY
     Route: 048
     Dates: start: 20040801
  9. DIGOXIN [Concomitant]
     Indication: ATRIAL FIBRILLATION
     Dosage: .25MG PER DAY
     Route: 048
  10. TENOFOVIR DISOPROXIL FUMARATE [Concomitant]
  11. EMTRICITABINE [Concomitant]
  12. UNKNOWN DRUG [Concomitant]
  13. OMEPRAZOLE [Concomitant]

REACTIONS (7)
  - COAGULATION FACTOR DEFICIENCY [None]
  - FALL [None]
  - HAEMOPHILIA [None]
  - JOINT INJURY [None]
  - MUSCLE HAEMORRHAGE [None]
  - MUSCLE NECROSIS [None]
  - WOUND [None]
